FAERS Safety Report 5098581-0 (Version None)
Quarter: 2006Q3

REPORT INFORMATION
  Report Type: 
  Country: None (occurrence: None)
  Receive Date: 20060907
  Receipt Date: 20060822
  Transmission Date: 20061208
  Serious: Yes (Hospitalization)
  Sender: FDA-Public Use
  Company Number: GBWYE762823AUG06

PATIENT
  Sex: Female
  Weight: 57 kg

DRUGS (6)
  1. ENBREL [Suspect]
     Indication: RHEUMATOID ARTHRITIS
     Route: 058
     Dates: start: 20040218, end: 20060803
  2. METHOTREXATE [Concomitant]
     Dosage: 15 MG WEEKLY
  3. FOSAMAX [Concomitant]
     Dosage: UNKNOWN
  4. MELOXICAM [Concomitant]
     Dosage: UNKNOWN
  5. PREDNISOLONE [Concomitant]
     Dosage: UNKNOWN
  6. DIHYDROCODEINE [Concomitant]
     Dosage: UNKNOWN

REACTIONS (4)
  - LOWER RESPIRATORY TRACT INFECTION [None]
  - LYMPHADENOPATHY [None]
  - PERICARDIAL EFFUSION [None]
  - PLEURAL EFFUSION [None]
